FAERS Safety Report 11183350 (Version 2)
Quarter: 2015Q3

REPORT INFORMATION
  Report Type: Spontaneous
  Country: US (occurrence: US)
  Receive Date: 20150612
  Receipt Date: 20150712
  Transmission Date: 20151125
  Serious: No
  Sender: FDA-Public Use
  Company Number: US-009507513-1506USA004151

PATIENT
  Age: 37 Year
  Sex: Female
  Weight: 59.86 kg

DRUGS (1)
  1. DULERA [Suspect]
     Active Substance: FORMOTEROL FUMARATE DIHYDRATE\MOMETASONE FUROATE
     Indication: ASTHMA
     Dosage: 2 PUFFS 1 TIME A DAY, ONCE DAILY
     Route: 055
     Dates: start: 20140609, end: 20140820

REACTIONS (3)
  - Oligomenorrhoea [Unknown]
  - Menstrual disorder [Not Recovered/Not Resolved]
  - Polymenorrhoea [Not Recovered/Not Resolved]

NARRATIVE: CASE EVENT DATE: 20140923
